FAERS Safety Report 8875598 (Version 1)
Quarter: 2012Q4

REPORT INFORMATION
  Report Type: 
  Country: US (occurrence: US)
  Receive Date: 20121030
  Receipt Date: 20121030
  Transmission Date: 20130627
  Serious: No
  Sender: FDA-Public Use
  Company Number: US-ABBOTT-12P-163-0918927-00

PATIENT

DRUGS (1)
  1. KALETRA TABLETS [Suspect]
     Indication: HIV INFECTION
     Dates: start: 20120315

REACTIONS (1)
  - Diarrhoea [Recovered/Resolved]
